FAERS Safety Report 7431088-1 (Version None)
Quarter: 2011Q2

REPORT INFORMATION
  Report Type: 
  Country: None (occurrence: None)
  Receive Date: 20110421
  Receipt Date: 20110411
  Transmission Date: 20111010
  Serious: Yes (Hospitalization, Other)
  Sender: FDA-Public Use
  Company Number: US-ELI_LILLY_AND_COMPANY-US201003002507

PATIENT
  Sex: Female

DRUGS (1)
  1. FORTEO [Suspect]
     Indication: OSTEOPOROSIS
     Dosage: 20 UG, DAILY (1/D)
     Route: 065
     Dates: start: 20100211

REACTIONS (10)
  - FATIGUE [None]
  - FIBROMYALGIA [None]
  - HYPERSENSITIVITY [None]
  - DEPRESSION [None]
  - CHEST PAIN [None]
  - HERPES ZOSTER [None]
  - DRUG INTERACTION [None]
  - PSYCHOTIC DISORDER [None]
  - MYALGIA [None]
  - ARTHRALGIA [None]
